FAERS Safety Report 9355935 (Version 2)
Quarter: 2013Q3

REPORT INFORMATION
  Report Type: Spontaneous
  Country: US (occurrence: US)
  Receive Date: 20130619
  Receipt Date: 20130703
  Transmission Date: 20140515
  Serious: Yes (Other)
  Sender: FDA-Public Use
  Company Number: US-TEVA-413383USA

PATIENT
  Sex: Male

DRUGS (1)
  1. ATENOLOL [Suspect]
     Route: 065

REACTIONS (2)
  - Coeliac disease [Unknown]
  - Pain in extremity [Unknown]
